FAERS Safety Report 4853142-0 (Version None)
Quarter: 2005Q4

REPORT INFORMATION
  Report Type: 
  Country: None (occurrence: None)
  Receive Date: 20051212
  Receipt Date: 20051129
  Transmission Date: 20060501
  Serious: Yes (Hospitalization)
  Sender: FDA-Public Use
  Company Number: 2005PV004921

PATIENT
  Age: 49 Year
  Sex: Male
  Weight: 127.9144 kg

DRUGS (11)
  1. BYETTA [Suspect]
     Indication: DIABETES MELLITUS NON-INSULIN-DEPENDENT
     Dosage: 10 MCG; QD; SC
     Route: 058
     Dates: start: 20051001
  2. METFORMIN [Concomitant]
  3. POTASSIUM CHLORIDE [Concomitant]
  4. RANITIDINE [Concomitant]
  5. LORATADINE [Concomitant]
  6. ASPIRIN [Concomitant]
  7. ALLOPURINOL [Concomitant]
  8. ALBUTEROL [Concomitant]
  9. DILANTIN [Concomitant]
  10. BENICAR [Concomitant]
  11. LORAZEPAM [Concomitant]

REACTIONS (9)
  - AGITATION [None]
  - ARTHROPATHY [None]
  - CHILLS [None]
  - HYPOTENSION [None]
  - MALAISE [None]
  - MUSCULAR WEAKNESS [None]
  - PYREXIA [None]
  - RASH GENERALISED [None]
  - STEVENS-JOHNSON SYNDROME [None]
